FAERS Safety Report 4566524-1 (Version None)
Quarter: 2005Q1

REPORT INFORMATION
  Report Type: 
  Country: None (occurrence: None)
  Receive Date: 20050126
  Receipt Date: 20050126
  Transmission Date: 20050727
  Serious: Yes (Life-Threatening, Hospitalization)
  Sender: FDA-Public Use
  Company Number: None

PATIENT
  Age: 64 Year
  Sex: Female
  Weight: 73.5 kg

DRUGS (7)
  1. METFORMIN    500MG   BRISTOL-MEYERS-SQUIB [Suspect]
     Indication: DIABETES MELLITUS NON-INSULIN-DEPENDENT
     Dosage: 1000MG   TWO TIMES/DAY   ORAL
     Route: 048
  2. VENLAFAXINE [Concomitant]
  3. CLONAZEPAM [Concomitant]
  4. ALPRAZOLAM [Concomitant]
  5. OXYCODONE HCL [Concomitant]
  6. OMEPRAZOLE [Concomitant]
  7. ROFECOXIB [Concomitant]

REACTIONS (2)
  - CHEST DISCOMFORT [None]
  - LACTIC ACIDOSIS [None]
